FAERS Safety Report 22332874 (Version 1)
Quarter: 2023Q2

REPORT INFORMATION
  Report Type: Spontaneous
  Country: GB (occurrence: GB)
  Receive Date: 20230517
  Receipt Date: 20230517
  Transmission Date: 20230721
  Serious: Yes (Other)
  Sender: FDA-Public Use
  Company Number: None

PATIENT
  Sex: Male

DRUGS (2)
  1. ZEPATIER [Suspect]
     Active Substance: ELBASVIR\GRAZOPREVIR
     Dosage: UNK
  2. METHADONE [Concomitant]
     Active Substance: METHADONE HYDROCHLORIDE
     Dosage: UNK

REACTIONS (1)
  - Treatment failure [Not Recovered/Not Resolved]
